FAERS Safety Report 8541435-5 (Version None)
Quarter: 2012Q3

REPORT INFORMATION
  Report Type: 
  Country: None (occurrence: None)
  Receive Date: 20120726
  Receipt Date: 20120719
  Transmission Date: 20120928
  Serious: Yes (Other)
  Sender: FDA-Public Use
  Company Number: CN-BAXTER-2012BAX012312

PATIENT
  Sex: Female

DRUGS (6)
  1. POLYENE  PHOSPHATIDYLCHOLINE INJECTION [Suspect]
     Indication: ASCITES
  2. ALBUMIN (HUMAN) [Suspect]
     Indication: HEPATIC CIRRHOSIS
     Dosage: 10.00 G/O.D.
     Route: 041
     Dates: start: 20100619, end: 20100619
  3. ALBUMIN (HUMAN) [Suspect]
     Indication: ASCITES
  4. POLYENE  PHOSPHATIDYLCHOLINE INJECTION [Suspect]
     Indication: HEPATIC CIRRHOSIS
     Route: 042
     Dates: start: 20100617
  5. ANTI-HBV FACTOR INJECTION [Suspect]
     Indication: HEPATIC CIRRHOSIS
     Route: 030
     Dates: start: 20100617
  6. ANTI-HBV FACTOR INJECTION [Suspect]
     Indication: ASCITES

REACTIONS (5)
  - LOSS OF CONSCIOUSNESS [None]
  - FOAMING AT MOUTH [None]
  - DIZZINESS [None]
  - ANAPHYLACTOID REACTION [None]
  - URTICARIA [None]
